FAERS Safety Report 9565792 (Version 2)
Quarter: 2013Q4

REPORT INFORMATION
  Report Type: Spontaneous
  Country: CN (occurrence: CN)
  Receive Date: 20130930
  Receipt Date: 20131022
  Transmission Date: 20140711
  Serious: Yes (Hospitalization)
  Sender: FDA-Public Use
  Company Number: CN-GLAXOSMITHKLINE-B0925770A

PATIENT
  Age: 36 Year
  Sex: Male

DRUGS (2)
  1. LAMIVUDINE-HBV [Suspect]
     Indication: HEPATITIS B
     Route: 065
     Dates: start: 2008, end: 20111029
  2. ADEFOVIR DIPIVOXIL [Concomitant]
     Dates: start: 2010

REACTIONS (16)
  - Rhabdomyolysis [Recovered/Resolved]
  - Alanine aminotransferase increased [Unknown]
  - Aspartate aminotransferase increased [Unknown]
  - Hepatitis B DNA increased [Unknown]
  - Pain in extremity [Unknown]
  - Myalgia [Unknown]
  - Fatigue [Unknown]
  - Malaise [Unknown]
  - Condition aggravated [Unknown]
  - Mobility decreased [Unknown]
  - Hypoaesthesia [Unknown]
  - Chromaturia [Unknown]
  - Blood creatine phosphokinase increased [Unknown]
  - Depressed mood [Unknown]
  - Hyporeflexia [Unknown]
  - Muscular weakness [Unknown]
